FAERS Safety Report 14192276 (Version 1)
Quarter: 2017Q4

REPORT INFORMATION
  Report Type: Other
  Country: US (occurrence: US)
  Receive Date: 20171115
  Receipt Date: 20171115
  Transmission Date: 20180321
  Serious: Yes (Death)
  Sender: FDA-Public Use
  Company Number: US-ALSI-201700410

PATIENT
  Sex: Male

DRUGS (1)
  1. OXYGEN 100% [Suspect]
     Active Substance: OXYGEN
     Indication: PRODUCT USED FOR UNKNOWN INDICATION

REACTIONS (3)
  - Multiple injuries [Fatal]
  - Accident [Fatal]
  - Intentional product misuse [Fatal]
